FAERS Safety Report 4269812-1 (Version None)
Quarter: 2004Q1

REPORT INFORMATION
  Report Type: 
  Country: None (occurrence: None)
  Receive Date: 20040112
  Receipt Date: 20031229
  Transmission Date: 20041129
  Serious: Yes (Life-Threatening, Hospitalization, Other)
  Sender: FDA-Public Use
  Company Number: 2003121914

PATIENT
  Age: 61 Year
  Sex: Female

DRUGS (9)
  1. TIKOSYN [Suspect]
     Indication: ATRIAL FIBRILLATION
     Dosage: 1000 MCG (BID), ORAL 3
     Route: 048
  2. ACETYLSALICYLIC ACID SRT [Concomitant]
  3. INSULIN [Concomitant]
  4. SPIRONOLACTONE [Concomitant]
  5. ATORVASTATIN (ATORVASTATIN) [Concomitant]
  6. DOCUSATE SODIUM (DOCUSATE SODIUM) [Concomitant]
  7. LEVOTHYROXINE SODIUM [Concomitant]
  8. LEVOFLOXACIN [Concomitant]
  9. FUROSEMIDE [Concomitant]

REACTIONS (5)
  - ATRIAL FIBRILLATION [None]
  - CREATININE RENAL CLEARANCE DECREASED [None]
  - DISEASE RECURRENCE [None]
  - ELECTROCARDIOGRAM QT CORRECTED INTERVAL PROLONGED [None]
  - ELECTROCARDIOGRAM QT PROLONGED [None]
